FAERS Safety Report 9770363 (Version 1)
Quarter: 2013Q4

REPORT INFORMATION
  Report Type: Spontaneous
  Country: US (occurrence: US)
  Receive Date: 20131218
  Receipt Date: 20131218
  Transmission Date: 20140711
  Serious: Yes (Hospitalization, Other)
  Sender: FDA-Public Use
  Company Number: US-BRISTOL-MYERS SQUIBB COMPANY-19889948

PATIENT
  Age: 53 Year
  Sex: Male

DRUGS (8)
  1. WARFARIN SODIUM [Suspect]
  2. LANTUS [Concomitant]
  3. DIGOXIN [Concomitant]
  4. LISINOPRIL [Concomitant]
  5. METOPROLOL [Concomitant]
  6. SIMVASTATIN [Concomitant]
  7. FUROSEMIDE [Concomitant]
  8. BABY ASPIRIN [Concomitant]

REACTIONS (4)
  - Chest pain [Unknown]
  - Blue toe syndrome [Unknown]
  - Onychomadesis [Unknown]
  - International normalised ratio decreased [Unknown]
